FAERS Safety Report 5276499-8 (Version None)
Quarter: 2007Q1

REPORT INFORMATION
  Report Type: 
  Country: None (occurrence: None)
  Receive Date: 20061213
  Receipt Date: 20031027
  Transmission Date: 20070707
  Serious: No
  Sender: FDA-Public Use
  Company Number: 2003UW10756

PATIENT
  Sex: Male

DRUGS (1)
  1. SEROQUEL [Suspect]
     Dosage: 800 MG DAILY PO
     Route: 048

REACTIONS (1)
  - CONVULSION [None]
